FAERS Safety Report 14558711 (Version 1)
Quarter: 2018Q1

REPORT INFORMATION
  Report Type: Spontaneous
  Country: US (occurrence: US)
  Receive Date: 20180221
  Receipt Date: 20180221
  Transmission Date: 20180509
  Serious: No
  Sender: FDA-Public Use
  Company Number: US-BAYER-2017-242494

PATIENT
  Age: 47 Year
  Sex: Female

DRUGS (3)
  1. METFORMIN [Concomitant]
     Active Substance: METFORMIN HYDROCHLORIDE
     Indication: ENDOMETRIAL ADENOCARCINOMA
  2. MIRENA [Suspect]
     Active Substance: LEVONORGESTREL
     Indication: ENDOMETRIAL ADENOCARCINOMA
     Dosage: 20 MCG/24HR, CONT
     Route: 015
     Dates: start: 20161116
  3. MEGACE [Concomitant]
     Active Substance: MEGESTROL ACETATE
     Indication: ENDOMETRIAL ADENOCARCINOMA

REACTIONS (4)
  - Drug ineffective for unapproved indication [None]
  - Contraindicated device used [None]
  - Off label use [None]
  - Product use in unapproved indication [None]

NARRATIVE: CASE EVENT DATE: 20161116
